FAERS Safety Report 10754018 (Version 1)
Quarter: 2015Q1

REPORT INFORMATION
  Report Type: Spontaneous
  Country: US (occurrence: None)
  Receive Date: 20150130
  Receipt Date: 20150130
  Transmission Date: 20150721
  Serious: Yes (Other)
  Sender: FDA-Public Use
  Company Number: None

PATIENT
  Age: 36 Year
  Sex: Male

DRUGS (1)
  1. ENTYVIO [Suspect]
     Active Substance: VEDOLIZUMAB
     Indication: CROHN^S DISEASE
     Dosage: 300MG EVERY 2 WEEKS, IV
     Route: 042
     Dates: start: 20150115, end: 20150115

REACTIONS (1)
  - Hypersensitivity [None]

NARRATIVE: CASE EVENT DATE: 20150115
